FAERS Safety Report 6470512-8 (Version None)
Quarter: 2009Q4

REPORT INFORMATION
  Report Type: 
  Country: None (occurrence: None)
  Receive Date: 20091203
  Receipt Date: 20091124
  Transmission Date: 20100525
  Serious: Yes (Hospitalization)
  Sender: FDA-Public Use
  Company Number: US-JNJFOC-20090708555

PATIENT
  Sex: Female

DRUGS (7)
  1. TYLENOL (CAPLET) [Suspect]
     Route: 048
  2. TYLENOL (CAPLET) [Suspect]
     Indication: ANALGESIC THERAPY
     Route: 048
  3. MOTRIN [Suspect]
     Indication: ANALGESIC THERAPY
     Route: 048
  4. ZOLOFT [Suspect]
     Indication: DEPRESSION
  5. DIOVAN [Concomitant]
     Indication: HYPERTENSION
  6. BUTALBITAL [Concomitant]
     Indication: HEADACHE
  7. ATENOLOL [Concomitant]
     Indication: DRUG USE FOR UNKNOWN INDICATION

REACTIONS (2)
  - CHOLESTASIS [None]
  - TOXIC EPIDERMAL NECROLYSIS [None]
